FAERS Safety Report 23725697 (Version 2)
Quarter: 2024Q2

REPORT INFORMATION
  Report Type: Report from Study
  Country: US (occurrence: US)
  Receive Date: 20240410
  Receipt Date: 20240422
  Transmission Date: 20240716
  Serious: Yes (Other)
  Sender: FDA-Public Use
  Company Number: US-ABBVIE-5711589

PATIENT
  Sex: Male

DRUGS (1)
  1. SKYRIZI [Suspect]
     Active Substance: RISANKIZUMAB-RZAA
     Indication: Psoriasis
     Route: 058
     Dates: start: 20200511

REACTIONS (11)
  - Cataract [Unknown]
  - Intestinal infarction [Unknown]
  - Intestinal ischaemia [Unknown]
  - Inflammatory bowel disease [Unknown]
  - Iron deficiency anaemia [Unknown]
  - Type 2 diabetes mellitus [Unknown]
  - Carotid artery disease [Unknown]
  - Prostatomegaly [Unknown]
  - Joint range of motion decreased [Unknown]
  - Gout [Unknown]
  - Sciatica [Unknown]
